FAERS Safety Report 10826051 (Version 1)
Quarter: 2015Q1

REPORT INFORMATION
  Report Type: Report from Study
  Country: FR (occurrence: FR)
  Receive Date: 20150219
  Receipt Date: 20150219
  Transmission Date: 20150721
  Serious: Yes (Death, Hospitalization)
  Sender: FDA-Public Use
  Company Number: FR-ROCHE-1163548

PATIENT
  Age: 82 Year
  Sex: Male

DRUGS (3)
  1. RITUXIMAB [Suspect]
     Active Substance: RITUXIMAB
     Route: 042
     Dates: start: 20080428
  2. CORTANCYL [Concomitant]
     Active Substance: PREDNISONE
     Route: 065
  3. RITUXIMAB [Suspect]
     Active Substance: RITUXIMAB
     Indication: RHEUMATOID ARTHRITIS
     Route: 042
     Dates: start: 20080414, end: 20080428

REACTIONS (11)
  - Hyperhidrosis [Recovered/Resolved]
  - Vertigo [Unknown]
  - Paraesthesia [Unknown]
  - Bronchitis [Fatal]
  - General physical health deterioration [Recovered/Resolved]
  - Asthenia [Unknown]
  - Cardiopulmonary failure [Fatal]
  - Bronchopneumonia [Fatal]
  - Rheumatoid arthritis [Recovered/Resolved]
  - Somnolence [Unknown]
  - Pain in extremity [Unknown]

NARRATIVE: CASE EVENT DATE: 20080530
